FAERS Safety Report 6497237-7 (Version None)
Quarter: 2009Q4

REPORT INFORMATION
  Report Type: 
  Country: None (occurrence: None)
  Receive Date: 20091215
  Receipt Date: 20090710
  Transmission Date: 20100525
  Serious: No
  Sender: FDA-Public Use
  Company Number: A0796387A

PATIENT
  Sex: Male

DRUGS (1)
  1. AVODART [Suspect]
     Indication: BENIGN PROSTATIC HYPERPLASIA
     Dosage: 1TAB SINGLE DOSE
     Route: 048
     Dates: start: 20090708

REACTIONS (2)
  - GLOSSODYNIA [None]
  - OESOPHAGEAL PAIN [None]
